FAERS Safety Report 10786403 (Version 1)
Quarter: 2015Q1

REPORT INFORMATION
  Report Type: Spontaneous
  Country: US (occurrence: None)
  Receive Date: 20150210
  Receipt Date: 20150210
  Transmission Date: 20150721
  Serious: Yes (Other)
  Sender: FDA-Public Use
  Company Number: None

PATIENT
  Age: 47 Year
  Sex: Female
  Weight: 62.6 kg

DRUGS (3)
  1. COMBIPATCH [Suspect]
     Active Substance: ESTRADIOL\NORETHINDRONE ACETATE
     Indication: HOT FLUSH
     Dosage: APPLIED TO A SURFACE, USUALLY THE SKIN
     Dates: start: 20140930, end: 20150203
  2. COMBIPATCH [Suspect]
     Active Substance: ESTRADIOL\NORETHINDRONE ACETATE
     Indication: OSTEOPOROSIS
     Dosage: APPLIED TO A SURFACE, USUALLY THE SKIN
     Dates: start: 20140930, end: 20150203
  3. ZOLEDRONIC ACID. [Suspect]
     Active Substance: ZOLEDRONIC ACID
     Indication: OSTEOPOROSIS
     Dosage: ANNUALLY, INTO A VEIN
     Dates: start: 20150126, end: 20150126

REACTIONS (4)
  - Feeling abnormal [None]
  - Headache [None]
  - Chest discomfort [None]
  - Memory impairment [None]

NARRATIVE: CASE EVENT DATE: 20150206
